FAERS Safety Report 5582006-2 (Version None)
Quarter: 2007Q4

REPORT INFORMATION
  Report Type: 
  Country: None (occurrence: None)
  Receive Date: 20071130
  Receipt Date: 20070220
  Transmission Date: 20080405
  Serious: Yes (Other)
  Sender: FDA-Public Use
  Company Number: WAES 0702USA03772

PATIENT
  Age: 58 Year
  Sex: Female

DRUGS (10)
  1. FOSAMAX [Suspect]
     Dosage: 35 MG/WKY, PO
     Route: 048
     Dates: start: 20040101, end: 20060801
  2. BONIVA [Concomitant]
  3. LIPITOR [Concomitant]
  4. PREMPRO [Concomitant]
  5. PROZAC [Concomitant]
  6. TRICOR [Concomitant]
  7. ASPIRIN [Concomitant]
  8. CALCIUM [Concomitant]
  9. OMEGA-3 MARINE TRIGLYCERIDES [Concomitant]
  10. VITAMINS [Concomitant]

REACTIONS (1)
  - OSTEONECROSIS [None]
